FAERS Safety Report 10480659 (Version 1)
Quarter: 2014Q3

REPORT INFORMATION
  Report Type: Spontaneous
  Country: US (occurrence: US)
  Receive Date: 20140929
  Receipt Date: 20140929
  Transmission Date: 20150326
  Serious: No
  Sender: FDA-Public Use
  Company Number: US-PFIZER INC-2014261312

PATIENT
  Sex: Female

DRUGS (1)
  1. NARDIL [Suspect]
     Active Substance: PHENELZINE SULFATE
     Indication: ANTIDEPRESSANT THERAPY
     Dosage: UNK

REACTIONS (1)
  - Stress [Unknown]

NARRATIVE: CASE EVENT DATE: 2014
